FAERS Safety Report 18431167 (Version 1)
Quarter: 2020Q4

REPORT INFORMATION
  Report Type: Spontaneous
  Country: US (occurrence: US)
  Receive Date: 20201027
  Receipt Date: 20201027
  Transmission Date: 20210114
  Serious: Yes (Hospitalization)
  Sender: FDA-Public Use
  Company Number: None

PATIENT
  Age: 53 Year
  Sex: Male

DRUGS (13)
  1. DIGOXIN. [Concomitant]
     Active Substance: DIGOXIN
  2. TADALAFIL 20MG TAB [Suspect]
     Active Substance: TADALAFIL
     Indication: PULMONARY ARTERIAL HYPERTENSION
     Dosage: ?          OTHER FREQUENCY:QAM - QPM ;?
     Route: 048
     Dates: start: 20180117
  3. OXYCODONE [Concomitant]
     Active Substance: OXYCODONE
  4. AMBRISENTAN 10MG TAB [Suspect]
     Active Substance: AMBRISENTAN
     Indication: PULMONARY ARTERIAL HYPERTENSION
     Route: 048
     Dates: start: 20171220
  5. GABAPENTIN. [Concomitant]
     Active Substance: GABAPENTIN
  6. METHYLPHENID [Concomitant]
     Active Substance: METHYLPHENIDATE
  7. PROVIGIL [Concomitant]
     Active Substance: MODAFINIL
  8. LASIX [Concomitant]
     Active Substance: FUROSEMIDE
  9. LISINOPRIL. [Concomitant]
     Active Substance: LISINOPRIL
  10. METFORMIN [Concomitant]
     Active Substance: METFORMIN HYDROCHLORIDE
  11. METOLAZONE. [Concomitant]
     Active Substance: METOLAZONE
  12. NARCOSOFT II [Concomitant]
  13. TYVASO [Concomitant]
     Active Substance: TREPROSTINIL

REACTIONS (2)
  - Heart rate decreased [None]
  - Arthralgia [None]

NARRATIVE: CASE EVENT DATE: 20201021
